FAERS Safety Report 16570761 (Version 1)
Quarter: 2019Q3

REPORT INFORMATION
  Report Type: Spontaneous
  Country: US (occurrence: US)
  Receive Date: 20190715
  Receipt Date: 20190715
  Transmission Date: 20191004
  Serious: Yes (Other)
  Sender: FDA-Public Use
  Company Number: US-PFIZER INC-2019297195

PATIENT
  Age: 58 Year
  Sex: Male
  Weight: 163 kg

DRUGS (4)
  1. FUROSEMIDE. [Suspect]
     Active Substance: FUROSEMIDE
     Indication: SWELLING
     Dosage: 20 MG, 1X/DAY
     Route: 048
     Dates: start: 20171013, end: 20171222
  2. BUMETANIDE. [Suspect]
     Active Substance: BUMETANIDE
     Indication: SWELLING
     Dosage: 20 MG, 1X/DAY
     Route: 048
     Dates: start: 20171222, end: 20180202
  3. AMLODIPINE BESILATE [Suspect]
     Active Substance: AMLODIPINE BESYLATE
     Indication: HYPERTENSION
     Dosage: 5 MG, 1X/DAY
     Route: 048
     Dates: start: 20141212, end: 20171222
  4. LISINOPRIL. [Suspect]
     Active Substance: LISINOPRIL
     Indication: HYPERTENSION
     Dosage: 20 MG, 1X/DAY
     Route: 048
     Dates: start: 20170222, end: 20180202

REACTIONS (2)
  - Tinnitus [Not Recovered/Not Resolved]
  - Ototoxicity [Unknown]

NARRATIVE: CASE EVENT DATE: 20180119
